FAERS Safety Report 9433083 (Version 1)
Quarter: 2013Q3

REPORT INFORMATION
  Report Type: Spontaneous
  Country: US (occurrence: US)
  Receive Date: 20130731
  Receipt Date: 20130731
  Transmission Date: 20140515
  Serious: Yes (Other)
  Sender: FDA-Public Use
  Company Number: US-NICOBRDEVP-2013-13020

PATIENT
  Age: 60 Year
  Sex: Female

DRUGS (3)
  1. ALENDRONATE SODIUM (WATSON LABORATORIES) [Suspect]
     Indication: PRODUCT USED FOR UNKNOWN INDICATION
     Dosage: ^AS PRESCRIBED AND IN A FORESEEABLE MANNER^
     Route: 048
     Dates: start: 200804, end: 201003
  2. FOSAMAX [Suspect]
     Indication: PRODUCT USED FOR UNKNOWN INDICATION
     Dosage: ^AS PRESCRIBED AND IN A FORESEEABLE MANNER^
     Route: 048
     Dates: start: 201003, end: 201101
  3. FOSAMAX [Suspect]
     Dosage: ^AS PRESCRIBED AND IN A FORESEEABLE MANNER^
     Route: 048
     Dates: start: 200402, end: 200905

REACTIONS (3)
  - Lower limb fracture [Unknown]
  - Femur fracture [Unknown]
  - Incorrect drug administration duration [Unknown]
